FAERS Safety Report 19957459 (Version 10)
Quarter: 2022Q3

REPORT INFORMATION
  Report Type: Spontaneous
  Country: JP (occurrence: JP)
  Receive Date: 20211014
  Receipt Date: 20220902
  Transmission Date: 20221027
  Serious: Yes (Death, Hospitalization, Other)
  Sender: FDA-Public Use
  Company Number: JP-BRISTOL-MYERS SQUIBB COMPANY-BMS-2020-097816

PATIENT
  Age: 75 Year
  Sex: Male
  Weight: 64 kg

DRUGS (23)
  1. YERVOY [Suspect]
     Active Substance: IPILIMUMAB
     Indication: Malignant melanoma
     Dosage: 172 ?????, Q3WK
     Route: 041
     Dates: start: 20200925, end: 20200925
  2. OPDIVO [Suspect]
     Active Substance: NIVOLUMAB
     Indication: Malignant melanoma
     Dosage: 80 ?????, Q3WK
     Route: 041
     Dates: start: 20200925, end: 20200925
  3. OPDIVO [Suspect]
     Active Substance: NIVOLUMAB
     Dosage: 240 ?????, Q2WK
     Route: 042
     Dates: start: 20201015, end: 20201015
  4. OPDIVO [Suspect]
     Active Substance: NIVOLUMAB
     Dosage: 240 ?????, Q2WK
     Route: 041
     Dates: start: 20201029, end: 20201029
  5. PREDNISOLONE SODIUM SUCCINATE [Suspect]
     Active Substance: PREDNISOLONE SODIUM SUCCINATE
     Indication: Hepatitis fulminant
     Dosage: 2 ?????/?????, QD
     Route: 041
     Dates: start: 20201001, end: 20201005
  6. PREDNISOLONE SODIUM SUCCINATE [Suspect]
     Active Substance: PREDNISOLONE SODIUM SUCCINATE
     Indication: Immune-mediated hepatic disorder
     Dosage: 100 ?????, QD
     Route: 041
     Dates: start: 20201002, end: 20201005
  7. PREDNISOLONE SODIUM SUCCINATE [Suspect]
     Active Substance: PREDNISOLONE SODIUM SUCCINATE
     Dosage: 60 ?????, QD
     Route: 041
     Dates: start: 20201006, end: 20201006
  8. PREDNISOLONE SODIUM SUCCINATE [Suspect]
     Active Substance: PREDNISOLONE SODIUM SUCCINATE
     Dosage: 40 ?????, QD
     Route: 041
     Dates: start: 20201007, end: 20201007
  9. PREDNISOLONE SODIUM SUCCINATE [Suspect]
     Active Substance: PREDNISOLONE SODIUM SUCCINATE
     Dosage: 20 ?????, QD
     Route: 041
     Dates: start: 20201008, end: 20201008
  10. PREDNISOLONE SODIUM SUCCINATE [Suspect]
     Active Substance: PREDNISOLONE SODIUM SUCCINATE
     Dosage: 10 ?????, ?????
     Route: 065
     Dates: start: 20201013, end: 20201029
  11. PREDNISOLONE SODIUM SUCCINATE [Suspect]
     Active Substance: PREDNISOLONE SODIUM SUCCINATE
     Dosage: ????????
     Route: 065
  12. PREDNISOLONE SODIUM SUCCINATE [Suspect]
     Active Substance: PREDNISOLONE SODIUM SUCCINATE
     Dosage: 6 ?????, QD
     Route: 065
     Dates: start: 20201024, end: 20201103
  13. PREDNISOLONE SODIUM SUCCINATE [Suspect]
     Active Substance: PREDNISOLONE SODIUM SUCCINATE
     Dosage: 10 ?????, QD
     Route: 065
     Dates: start: 20201104, end: 20201106
  14. PREDNISOLONE SODIUM SUCCINATE [Suspect]
     Active Substance: PREDNISOLONE SODIUM SUCCINATE
     Dosage: 100 ??????, QD
     Route: 041
     Dates: start: 20201107
  15. PREDNISOLONE SODIUM SUCCINATE [Suspect]
     Active Substance: PREDNISOLONE SODIUM SUCCINATE
     Dosage: 100 ?????, QD
     Route: 041
     Dates: start: 20201117, end: 20201122
  16. PREDNISOLONE SODIUM SUCCINATE [Suspect]
     Active Substance: PREDNISOLONE SODIUM SUCCINATE
     Dosage: 80 ?????, QD
     Route: 041
     Dates: start: 20201123, end: 20201124
  17. PREDNISOLONE SODIUM SUCCINATE [Suspect]
     Active Substance: PREDNISOLONE SODIUM SUCCINATE
     Dosage: 60 ?????, QD
     Route: 041
     Dates: start: 20201125, end: 20201126
  18. PREDNISOLONE SODIUM SUCCINATE [Suspect]
     Active Substance: PREDNISOLONE SODIUM SUCCINATE
     Dosage: 50 ?????, QD
     Route: 041
     Dates: start: 20201127, end: 20201129
  19. PREDNISOLONE SODIUM SUCCINATE [Suspect]
     Active Substance: PREDNISOLONE SODIUM SUCCINATE
     Dosage: 40 ?????, QD
     Route: 041
     Dates: start: 20201130, end: 20201202
  20. SOLU-MEDROL [Suspect]
     Active Substance: METHYLPREDNISOLONE SODIUM SUCCINATE
     Indication: Immune-mediated hepatic disorder
     Dosage: 1000 ???????, QD
     Route: 065
     Dates: start: 20201110, end: 20201112
  21. SOLU-MEDROL [Suspect]
     Active Substance: METHYLPREDNISOLONE SODIUM SUCCINATE
     Indication: Hepatitis fulminant
  22. CELLCEPT [Suspect]
     Active Substance: MYCOPHENOLATE MOFETIL
     Indication: Immune-mediated hepatic disorder
     Dosage: 1 ???, BID, 3??
     Route: 065
     Dates: start: 20201112, end: 20201114
  23. CELLCEPT [Suspect]
     Active Substance: MYCOPHENOLATE MOFETIL
     Indication: Hepatitis fulminant

REACTIONS (11)
  - COVID-19 [Fatal]
  - Malignant neoplasm progression [Fatal]
  - Enterocolitis [Unknown]
  - Immune-mediated hepatic disorder [Recovered/Resolved]
  - Hepatitis fulminant [Unknown]
  - Pneumatosis intestinalis [Unknown]
  - Constipation [Unknown]
  - Rash [Unknown]
  - Acidosis [Unknown]
  - Hypoglycaemia [Unknown]
  - Blood pressure immeasurable [Unknown]

NARRATIVE: CASE EVENT DATE: 20200929
